FAERS Safety Report 13226171 (Version 1)
Quarter: 2017Q1

REPORT INFORMATION
  Report Type: Spontaneous
  Country: US (occurrence: US)
  Receive Date: 20170213
  Receipt Date: 20170213
  Transmission Date: 20170428
  Serious: Yes (Disabling, Other)
  Sender: FDA-Public Use
  Company Number: None

PATIENT
  Age: 47 Year
  Sex: Female
  Weight: 70.2 kg

DRUGS (6)
  1. BUTRANS [Suspect]
     Active Substance: BUPRENORPHINE
     Indication: PAIN
     Dosage: 1 PATCH(ES) WEEKLY TOPICAL
     Route: 061
  2. BUTRANS [Suspect]
     Active Substance: BUPRENORPHINE
     Indication: MULTIPLE SCLEROSIS
     Dosage: 1 PATCH(ES) WEEKLY TOPICAL
     Route: 061
  3. GABERPENTIN [Concomitant]
  4. VITAMIN D [Concomitant]
     Active Substance: CHOLECALCIFEROL
  5. HYDOCHOLATHIZIDE [Concomitant]
  6. CAFFINE [Concomitant]
     Active Substance: CAFFEINE

REACTIONS (2)
  - Rash [None]
  - Burning sensation [None]

NARRATIVE: CASE EVENT DATE: 20160418
